FAERS Safety Report 8255622 (Version 6)
Quarter: 2015Q1

REPORT INFORMATION
  Report Type: Report from Study
  Country: DK (occurrence: DK)
  Receive Date: 20111118
  Receipt Date: 20150320
  Transmission Date: 20150721
  Serious: Yes (Hospitalization)
  Sender: FDA-Public Use
  Company Number: DK-ROCHE-794082

PATIENT
  Age: 61 Year
  Sex: Male
  Weight: 52 kg

DRUGS (18)
  1. PEGFILGRASTIM [Suspect]
     Active Substance: PEGFILGRASTIM
     Dosage: LAST DOSE PRIOR TO SAE: 20/AUG/2011.
     Route: 058
     Dates: start: 20110804
  2. PEGFILGRASTIM [Suspect]
     Active Substance: PEGFILGRASTIM
     Dosage: DISCONTINUED PERMANENTLY.
     Route: 058
     Dates: start: 20110819, end: 20110819
  3. PREDNISONE. [Suspect]
     Active Substance: PREDNISONE
     Dosage: DISCONTINUED PERMANENTLY.
     Route: 048
     Dates: start: 20110818, end: 20110822
  4. DOXORUBICIN [Suspect]
     Active Substance: DOXORUBICIN
     Dosage: LAST DOSE PRIOR TO SAE: 03 AUGUST 2011
     Route: 042
     Dates: start: 20110803
  5. RITUXIMAB [Suspect]
     Active Substance: RITUXIMAB
     Dosage: DISCONTINUED PERMANENTLY
     Route: 042
     Dates: start: 20110818, end: 20110818
  6. CYCLOPHOSPHAMIDE. [Suspect]
     Active Substance: CYCLOPHOSPHAMIDE
     Indication: DIFFUSE LARGE B-CELL LYMPHOMA
     Dosage: LAST DOSE PRIOR SAE: 18 JULY 2011
     Route: 042
     Dates: start: 20110718
  7. VINCRISTINE [Suspect]
     Active Substance: VINCRISTINE
     Indication: DIFFUSE LARGE B-CELL LYMPHOMA
     Dosage: LAST DOSE PRIOR SAE: 18 JULY 2011
     Route: 042
     Dates: start: 20110718
  8. PREDNISONE. [Suspect]
     Active Substance: PREDNISONE
     Dosage: LAST DOSE PRIOR TO SAE: 07 AUGUST 2011
     Route: 048
     Dates: start: 20110803
  9. DOXORUBICIN [Suspect]
     Active Substance: DOXORUBICIN
     Indication: DIFFUSE LARGE B-CELL LYMPHOMA
     Dosage: LAST DOSE PRIOR SAE: 18 JULY 2011
     Route: 042
     Dates: start: 20110718
  10. PREDNISONE. [Suspect]
     Active Substance: PREDNISONE
     Indication: DIFFUSE LARGE B-CELL LYMPHOMA
     Dosage: LAST DOSE PRIOR SAE: 22 JULY 2011
     Route: 048
     Dates: start: 20110718
  11. CYCLOPHOSPHAMIDE. [Suspect]
     Active Substance: CYCLOPHOSPHAMIDE
     Dosage: LAST DOSE PRIOR TO SAE: 03 AUGUST 2011
     Route: 042
     Dates: start: 20110803
  12. VINCRISTINE [Suspect]
     Active Substance: VINCRISTINE
     Dosage: LAST DOSE PRIOR TO SAE: 03 AUGUST 2011
     Route: 042
     Dates: start: 20110803
  13. VINCRISTINE [Suspect]
     Active Substance: VINCRISTINE
     Dosage: DISCONTINUED PERMANENTLY
     Route: 042
     Dates: start: 20110818, end: 20110818
  14. DOXORUBICIN [Suspect]
     Active Substance: DOXORUBICIN
     Dosage: DISCONTINUED PERMANENTLY
     Route: 042
     Dates: start: 20110818, end: 20110818
  15. RITUXIMAB [Suspect]
     Active Substance: RITUXIMAB
     Dosage: LAST DOSE PRIOR TO SAE: 03 AUGUST 2011
     Route: 042
  16. CYCLOPHOSPHAMIDE. [Suspect]
     Active Substance: CYCLOPHOSPHAMIDE
     Dosage: DISCONTINUED PERMANENTLY
     Route: 042
     Dates: start: 20110818, end: 20110818
  17. RITUXIMAB [Suspect]
     Active Substance: RITUXIMAB
     Indication: DIFFUSE LARGE B-CELL LYMPHOMA
     Dosage: LAST DOSE PRIOR SAE: 18 JULY 2011.
     Route: 042
  18. PEGFILGRASTIM [Suspect]
     Active Substance: PEGFILGRASTIM
     Indication: DIFFUSE LARGE B-CELL LYMPHOMA
     Dosage: LAST DOSE PRIOR TO SAE: 20/JUL/2011.
     Route: 058
     Dates: start: 20110720

REACTIONS (4)
  - Weight decreased [Recovered/Resolved]
  - Stomatitis [Recovered/Resolved]
  - Febrile neutropenia [Recovered/Resolved]
  - Diarrhoea [Recovered/Resolved]

NARRATIVE: CASE EVENT DATE: 20110719
